FAERS Safety Report 9493616 (Version 2)
Quarter: 2013Q4

REPORT INFORMATION
  Report Type: Report from Study
  Country: CA (occurrence: CA)
  Receive Date: 20130902
  Receipt Date: 20131002
  Transmission Date: 20140711
  Serious: Yes (Hospitalization, Other)
  Sender: FDA-Public Use
  Company Number: CA-ROCHE-1269223

PATIENT
  Age: 87 Year
  Sex: Male
  Weight: 72.6 kg

DRUGS (6)
  1. RANIBIZUMAB [Suspect]
     Indication: AGE-RELATED MACULAR DEGENERATION
     Dosage: MOST RECENT DOSE ON 22/FEB/2013
     Route: 050
     Dates: start: 20100427
  2. METOPROLOL TARTRATE [Concomitant]
  3. NOVO-HYDRAZIDE [Concomitant]
  4. SIMVASTATIN [Concomitant]
  5. NORVASC [Concomitant]
  6. JAMP-ASA [Concomitant]

REACTIONS (2)
  - Myocardial infarction [Recovered/Resolved]
  - Pneumonia [Unknown]
